FAERS Safety Report 15704432 (Version 3)
Quarter: 2019Q3

REPORT INFORMATION
  Report Type: Spontaneous
  Country: CA (occurrence: CA)
  Receive Date: 20181210
  Receipt Date: 20190913
  Transmission Date: 20191004
  Serious: Yes (Other)
  Sender: FDA-Public Use
  Company Number: CA-TEVA-2018-CA-985808

PATIENT
  Age: 31 Year
  Sex: Female

DRUGS (19)
  1. PROPOFOL. [Suspect]
     Active Substance: PROPOFOL
     Indication: STATUS EPILEPTICUS
     Route: 042
  2. ATIVAN [Suspect]
     Active Substance: LORAZEPAM
     Indication: BIPOLAR DISORDER
     Route: 065
  3. THIOPENTAL [Suspect]
     Active Substance: THIOPENTAL
     Route: 042
  4. APO DIAZEPAM [Suspect]
     Active Substance: DIAZEPAM
     Indication: STATUS EPILEPTICUS
     Route: 065
  5. MAGNESIUM SULFATE. [Suspect]
     Active Substance: MAGNESIUM SULFATE
     Indication: STATUS EPILEPTICUS
     Route: 065
  6. PHENYTOIN. [Suspect]
     Active Substance: PHENYTOIN
     Indication: STATUS EPILEPTICUS
     Route: 065
  7. APO-LORAZEPAM [Suspect]
     Active Substance: LORAZEPAM
     Indication: STATUS EPILEPTICUS
     Route: 065
  8. THIOPENTAL [Suspect]
     Active Substance: THIOPENTAL
     Route: 042
  9. THIOPENTAL [Suspect]
     Active Substance: THIOPENTAL
     Route: 042
  10. MIDAZOLAM HYDROCHLORIDE. [Suspect]
     Active Substance: MIDAZOLAM HYDROCHLORIDE
     Indication: STATUS EPILEPTICUS
     Route: 065
  11. THIOPENTAL [Suspect]
     Active Substance: THIOPENTAL
     Route: 042
  12. PAROXETINE HYDROCHLORIDE. [Suspect]
     Active Substance: PAROXETINE HYDROCHLORIDE
     Indication: BIPOLAR DISORDER
     Route: 065
  13. APO-PAROXETINE [Suspect]
     Active Substance: PAROXETINE
     Indication: BIPOLAR DISORDER
     Route: 065
  14. SUCCINYLCHOLINE CHLORIDE. [Suspect]
     Active Substance: SUCCINYLCHOLINE CHLORIDE
     Indication: ENDOTRACHEAL INTUBATION
     Route: 065
  15. SODIUM CITRATE. [Suspect]
     Active Substance: SODIUM CITRATE
     Indication: PROPHYLAXIS
     Route: 048
  16. THIOPENTAL [Suspect]
     Active Substance: THIOPENTAL
     Indication: STATUS EPILEPTICUS
     Route: 042
  17. THIOPENTAL [Suspect]
     Active Substance: THIOPENTAL
     Indication: ENDOTRACHEAL INTUBATION
     Route: 042
  18. DEXTROSE 5% INJECTION USP [Suspect]
     Active Substance: DEXTROSE\WATER
     Indication: PRODUCT USED FOR UNKNOWN INDICATION
     Route: 042
  19. METOCLOPRAMIDE. [Suspect]
     Active Substance: METOCLOPRAMIDE
     Indication: PROPHYLAXIS
     Route: 042

REACTIONS (18)
  - Blood calcium decreased [Not Recovered/Not Resolved]
  - Renal impairment [Not Recovered/Not Resolved]
  - Hypotension [Not Recovered/Not Resolved]
  - Loss of consciousness [Not Recovered/Not Resolved]
  - PO2 increased [Not Recovered/Not Resolved]
  - Blood bicarbonate decreased [Not Recovered/Not Resolved]
  - Diabetes insipidus [Not Recovered/Not Resolved]
  - Encephalopathy [Not Recovered/Not Resolved]
  - Exposure during pregnancy [Not Recovered/Not Resolved]
  - Blood magnesium decreased [Not Recovered/Not Resolved]
  - Drug ineffective [Not Recovered/Not Resolved]
  - PCO2 increased [Not Recovered/Not Resolved]
  - Blood pH decreased [Not Recovered/Not Resolved]
  - Foetal death [Not Recovered/Not Resolved]
  - Oxygen saturation abnormal [Not Recovered/Not Resolved]
  - Renal ischaemia [Not Recovered/Not Resolved]
  - Left ventricular dysfunction [Not Recovered/Not Resolved]
  - Maternal exposure during pregnancy [Not Recovered/Not Resolved]
